FAERS Safety Report 19092763 (Version 1)
Quarter: 2021Q2

REPORT INFORMATION
  Report Type: Report from Study
  Country: US (occurrence: US)
  Receive Date: 20210405
  Receipt Date: 20210405
  Transmission Date: 20210717
  Serious: Yes (Hospitalization)
  Sender: FDA-Public Use
  Company Number: US-LOREAL USA PRODUCTS, INC.-2021LOR00013

PATIENT

DRUGS (1)
  1. KIEHLS SINCE 1851 DERMATOLOGIST SOLUTIONS SUPERFLUID UV DEFENSE BROAD SPF50 PLUS [Suspect]
     Active Substance: AVOBENZONE\HOMOSALATE\OCTISALATE\OCTOCRYLENE\OXYBENZONE
     Dosage: UNK

REACTIONS (1)
  - COVID-19 [Unknown]
